FAERS Safety Report 6447245-7 (Version None)
Quarter: 2009Q4

REPORT INFORMATION
  Report Type: 
  Country: None (occurrence: None)
  Receive Date: 20091119
  Receipt Date: 20091110
  Transmission Date: 20100525
  Serious: Yes (Hospitalization)
  Sender: FDA-Public Use
  Company Number: US-PFIZER INC-2008021608

PATIENT
  Sex: Female

DRUGS (4)
  1. SUTENT [Suspect]
     Indication: MENINGIOMA
     Dosage: 50 MG, 28 DAYS ON, 14 DAYS OFF
     Route: 048
     Dates: start: 20080111
  2. ACETAMINOPHEN [Concomitant]
     Dosage: UNK
     Dates: start: 20080111, end: 20080411
  3. CALCIUM WITH VITAMIN D [Concomitant]
     Dosage: UNK
     Dates: start: 20080111, end: 20080411
  4. ONDANSETRON [Concomitant]
     Dosage: UNK
     Dates: start: 20080130, end: 20080411

REACTIONS (2)
  - CONTUSION [None]
  - GAIT DISTURBANCE [None]
